FAERS Safety Report 5979891-9 (Version None)
Quarter: 2008Q4

REPORT INFORMATION
  Report Type: 
  Country: None (occurrence: None)
  Receive Date: 20081126
  Receipt Date: 20081117
  Transmission Date: 20090506
  Serious: Yes (Disabling)
  Sender: FDA-Public Use
  Company Number: 08AR001113

PATIENT
  Age: 67 Year
  Sex: Male

DRUGS (8)
  1. VALPROIC ACID [Suspect]
     Indication: ABNORMAL BEHAVIOUR
     Dosage: 500 MG, BID, ORAL
     Route: 048
  2. VALPROIC ACID [Suspect]
     Indication: COGNITIVE DISORDER
     Dosage: 500 MG, BID, ORAL
     Route: 048
  3. VALPROIC ACID [Suspect]
     Indication: PSYCHIATRIC SYMPTOM
     Dosage: 500 MG, BID, ORAL
     Route: 048
  4. PAROXETINE HCL [Suspect]
     Indication: ANXIETY
  5. PAROXETINE HCL [Suspect]
     Indication: DEPRESSION
  6. OLANZAPINE [Concomitant]
  7. CLONAZEPAM [Concomitant]
  8. RIVASTIGMINE TARTRATE [Concomitant]

REACTIONS (12)
  - ABNORMAL BEHAVIOUR [None]
  - COGNITIVE DISORDER [None]
  - CONDITION AGGRAVATED [None]
  - DISINHIBITION [None]
  - DYSTONIA [None]
  - FACE INJURY [None]
  - FALL [None]
  - GAIT DISTURBANCE [None]
  - IMPULSIVE BEHAVIOUR [None]
  - PARKINSONISM [None]
  - PLEUROTHOTONUS [None]
  - PSYCHIATRIC SYMPTOM [None]
